FAERS Safety Report 11552399 (Version 1)
Quarter: 2015Q3

REPORT INFORMATION
  Report Type: Spontaneous
  Country: US (occurrence: US)
  Receive Date: 20150925
  Receipt Date: 20150925
  Transmission Date: 20151125
  Serious: No
  Sender: FDA-Public Use
  Company Number: US-PFIZER INC-2015317915

PATIENT
  Sex: Female

DRUGS (2)
  1. MYCOBUTIN [Suspect]
     Active Substance: RIFABUTIN
     Indication: INFECTION
     Dosage: UNK
  2. BIAXIN [Suspect]
     Active Substance: CLARITHROMYCIN
     Dosage: UNK

REACTIONS (3)
  - Bone pain [Unknown]
  - Arthritis [Unknown]
  - Drug effect increased [Unknown]
